FAERS Safety Report 6312088-1 (Version None)
Quarter: 2009Q3

REPORT INFORMATION
  Report Type: 
  Country: None (occurrence: None)
  Receive Date: 20090813
  Receipt Date: 20090813
  Transmission Date: 20100115
  Serious: Yes (Other)
  Sender: FDA-Public Use
  Company Number: None

PATIENT

DRUGS (2)
  1. ANECTINE [Suspect]
     Indication: PREMEDICATION
     Dosage: UNKNOWN ONCE IV BOLUS
     Route: 040
     Dates: start: 20090811, end: 20090811
  2. ANECTINE [Suspect]

REACTIONS (1)
  - NO ADVERSE EVENT [None]
